FAERS Safety Report 7960229-2 (Version None)
Quarter: 2011Q4

REPORT INFORMATION
  Report Type: 
  Country: None (occurrence: None)
  Receive Date: 20111206
  Receipt Date: 20111202
  Transmission Date: 20120403
  Serious: Yes (Hospitalization)
  Sender: FDA-Public Use
  Company Number: US-VERTEX PHARMACEUTICALS INC.-AE-2011-003930

PATIENT
  Sex: Female
  Weight: 93.07 kg

DRUGS (15)
  1. SOMA [Concomitant]
     Indication: MUSCLE RELAXANT THERAPY
     Route: 048
  2. VALIUM [Concomitant]
     Indication: ANXIETY
     Route: 048
  3. INCIVEK [Suspect]
     Indication: HEPATITIS C
     Route: 048
     Dates: start: 20111021, end: 20111201
  4. OMEPRAZOLE [Concomitant]
     Indication: GASTROOESOPHAGEAL REFLUX DISEASE
     Route: 048
  5. PEGASYS [Concomitant]
     Indication: HEPATITIS C
     Route: 058
     Dates: start: 20111021, end: 20111201
  6. MAGNESIUM SULFATE [Concomitant]
     Indication: MINERAL SUPPLEMENTATION
     Route: 048
  7. OXYCODONE HCL [Concomitant]
     Indication: PAIN
     Route: 048
  8. METFORMIN HCL [Concomitant]
     Indication: DIABETES MELLITUS
     Route: 048
  9. VITAMIN D [Concomitant]
     Indication: MEDICAL DIET
     Route: 048
  10. LISINOPRIL [Concomitant]
     Indication: HYPERTENSION
     Route: 048
  11. VITAMIN B-12 [Concomitant]
     Indication: MEDICAL DIET
     Route: 048
  12. INCIVEK [Suspect]
     Route: 048
  13. RIBASPHERE [Concomitant]
     Indication: HEPATITIS C
     Route: 048
     Dates: start: 20111021
  14. LEXAPRO [Concomitant]
     Indication: DEPRESSION
     Route: 048
  15. MILK THISTLE [Concomitant]
     Indication: MEDICAL DIET
     Route: 048

REACTIONS (7)
  - FATIGUE [None]
  - DEHYDRATION [None]
  - DIARRHOEA [None]
  - HYPOTENSION [None]
  - PRURITUS [None]
  - NAUSEA [None]
  - DRUG INEFFECTIVE [None]
